FAERS Safety Report 22175036 (Version 2)
Quarter: 2023Q2

REPORT INFORMATION
  Report Type: Spontaneous
  Country: US (occurrence: US)
  Receive Date: 20230405
  Receipt Date: 20230426
  Transmission Date: 20230721
  Serious: No
  Sender: FDA-Public Use
  Company Number: US-APOTEX-2022AP008215

PATIENT
  Sex: Female
  Weight: 77.11 kg

DRUGS (1)
  1. TRAZODONE [Suspect]
     Active Substance: TRAZODONE HYDROCHLORIDE
     Indication: Sleep disorder
     Dosage: 50 MILLIGRAM
     Route: 065
     Dates: start: 2005, end: 20220505

REACTIONS (3)
  - Mania [Unknown]
  - Unevaluable event [Unknown]
  - Withdrawal syndrome [Unknown]
